FAERS Safety Report 16916450 (Version 1)
Quarter: 2019Q4

REPORT INFORMATION
  Report Type: Spontaneous
  Country: GB (occurrence: GB)
  Receive Date: 20191014
  Receipt Date: 20191014
  Transmission Date: 20200122
  Serious: Yes (Disabling)
  Sender: FDA-Public Use
  Company Number: GB-GALDERMA-GB19061458

PATIENT
  Age: 48 Year
  Sex: Male

DRUGS (4)
  1. FENBID [Concomitant]
     Active Substance: IBUPROFEN
     Indication: PRODUCT USED FOR UNKNOWN INDICATION
     Route: 061
     Dates: start: 20190319
  2. IVERMECTIN. [Suspect]
     Active Substance: IVERMECTIN
     Indication: ROSACEA
     Route: 061
     Dates: start: 20190325
  3. PROPRANOLOL [Concomitant]
     Active Substance: PROPRANOLOL HYDROCHLORIDE
     Indication: PRODUCT USED FOR UNKNOWN INDICATION
     Dosage: 30 MG
     Route: 048
     Dates: start: 20131015
  4. MESALAZINE [Concomitant]
     Active Substance: MESALAMINE
     Indication: COLITIS ULCERATIVE
     Dosage: 1 GRAM
     Route: 054
     Dates: start: 20190315

REACTIONS (6)
  - Rectal haemorrhage [Not Recovered/Not Resolved]
  - Proctitis [Not Recovered/Not Resolved]
  - Inappropriate schedule of product administration [Recovered/Resolved]
  - Overdose [Recovered/Resolved]
  - Colitis ulcerative [Unknown]
  - Diarrhoea [Not Recovered/Not Resolved]

NARRATIVE: CASE EVENT DATE: 20190325
